FAERS Safety Report 20793364 (Version 1)
Quarter: 2022Q2

REPORT INFORMATION
  Report Type: Other
  Country: DK (occurrence: DK)
  Receive Date: 20220506
  Receipt Date: 20220506
  Transmission Date: 20220720
  Serious: Yes (Life-Threatening, Hospitalization, Disabling, Other)
  Sender: FDA-Public Use
  Company Number: None

PATIENT

DRUGS (6)
  1. PEGASPARGASE [Suspect]
     Active Substance: PEGASPARGASE
     Indication: Precursor T-lymphoblastic lymphoma/leukaemia
     Dosage: 1000 MG/M2 I.M., D1 EVERY 3 WEEKS, 4 COURSES
     Route: 065
  2. DEXAMETHASONE [Suspect]
     Active Substance: DEXAMETHASONE
     Indication: Precursor T-lymphoblastic lymphoma/leukaemia
     Dosage: 40 MG, D1-4 EVERY 3 WEEKS, 4 COURSES
     Route: 065
  3. NELARABINE [Suspect]
     Active Substance: NELARABINE
     Indication: Precursor T-lymphoblastic lymphoma/leukaemia
     Dosage: 1500 MG/M2, D1, 3, 5 EVERY 3 WEEKS, 4 COURSES
     Route: 065
  4. DARATUMUMAB [Suspect]
     Active Substance: DARATUMUMAB
     Indication: Precursor T-lymphoblastic lymphoma/leukaemia
     Dosage: 16 MG/KG I.V., D1 WEEKLY FOR 13 WEEKS (TILL START OF CONDITIONING)
     Route: 042
  5. CYCLOPHOSPHAMIDE [Suspect]
     Active Substance: CYCLOPHOSPHAMIDE
     Indication: Bone marrow conditioning regimen
     Dosage: 120 MG/KG
     Route: 065
  6. PEGFILGRASTIM [Concomitant]
     Active Substance: PEGFILGRASTIM
     Indication: Product used for unknown indication
     Dosage: 6 MG S.C., D7 EVERY 3 WEEKS, 4 COURSES
     Route: 058

REACTIONS (5)
  - Nervous system disorder [Not Recovered/Not Resolved]
  - Brain stem syndrome [Not Recovered/Not Resolved]
  - Peripheral sensory neuropathy [Not Recovered/Not Resolved]
  - Febrile neutropenia [Unknown]
  - Myelosuppression [Unknown]
